FAERS Safety Report 7439548-4 (Version None)
Quarter: 2011Q2

REPORT INFORMATION
  Report Type: 
  Country: None (occurrence: None)
  Receive Date: 20110427
  Receipt Date: 20110418
  Transmission Date: 20111010
  Serious: Yes (Other)
  Sender: FDA-Public Use
  Company Number: CA-TEVA-277827USA

PATIENT
  Age: 61 Year
  Sex: Female
  Weight: 56.296 kg

DRUGS (1)
  1. TRAZODONE HCL [Suspect]

REACTIONS (6)
  - DYSPEPSIA [None]
  - NAUSEA [None]
  - COMMUNICATION DISORDER [None]
  - COMA [None]
  - DIZZINESS [None]
  - URINARY INCONTINENCE [None]
